FAERS Safety Report 5618047-6 (Version None)
Quarter: 2008Q1

REPORT INFORMATION
  Report Type: 
  Country: None (occurrence: None)
  Receive Date: 20080207
  Receipt Date: 20070919
  Transmission Date: 20080703
  Serious: No
  Sender: FDA-Public Use
  Company Number: A0683867A

PATIENT
  Age: 69 Year
  Sex: Male
  Weight: 104.5 kg

DRUGS (5)
  1. PAROXETINE [Suspect]
     Indication: ANXIETY
     Dosage: 20MG AT NIGHT
     Route: 048
     Dates: start: 20040101
  2. GEMFIBROZIL [Concomitant]
  3. QUINAPRIL HCL [Concomitant]
  4. LOVASTATIN [Concomitant]
  5. ATENOLOL [Concomitant]

REACTIONS (2)
  - PANIC ATTACK [None]
  - PHARMACEUTICAL PRODUCT COMPLAINT [None]
